FAERS Safety Report 20641346 (Version 1)
Quarter: 2022Q1

REPORT INFORMATION
  Report Type: Report from Study
  Country: EG (occurrence: EG)
  Receive Date: 20220328
  Receipt Date: 20220328
  Transmission Date: 20220424
  Serious: Yes (Other)
  Sender: FDA-Public Use
  Company Number: EG-BAYER-2022A040740

PATIENT
  Sex: Female

DRUGS (3)
  1. EYLEA [Suspect]
     Active Substance: AFLIBERCEPT
     Indication: Retinal vein occlusion
     Dosage: RETINAL OCCLUSION (UNKNOWN ORIGIN) FOR LEFT EYE AND DME FOR RIGHT EYE
     Route: 031
     Dates: start: 2019
  2. EYLEA [Suspect]
     Active Substance: AFLIBERCEPT
     Indication: Diabetic retinal oedema
     Dosage: 1 DF, ONCE - LAST INJECTION ADMINISTERED ON RIGHT EYE. TOTAL NUMBER OF INJECTIONS IS UNKNOWN.
     Route: 031
     Dates: start: 20220310, end: 20220310
  3. EMPAGLIFLOZIN [Concomitant]
     Active Substance: EMPAGLIFLOZIN
     Indication: Diabetes mellitus
     Dosage: 2 DF, QD

REACTIONS (2)
  - Eye haematoma [Recovered/Resolved]
  - Ocular hyperaemia [Recovered/Resolved]

NARRATIVE: CASE EVENT DATE: 20220310
